FAERS Safety Report 5034629-7 (Version None)
Quarter: 2006Q2

REPORT INFORMATION
  Report Type: 
  Country: None (occurrence: None)
  Receive Date: 20060621
  Receipt Date: 20060605
  Transmission Date: 20061013
  Serious: Yes (Hospitalization)
  Sender: FDA-Public Use
  Company Number: DSA_60868_2006

PATIENT
  Sex: Male

DRUGS (3)
  1. DIHYDERGOT [Suspect]
     Dosage: DF PO
     Route: 048
  2. KEISHIBUKURYOUGAN [Concomitant]
  3. PROMETHAZINE HCL [Concomitant]

REACTIONS (2)
  - INTERSTITIAL LUNG DISEASE [None]
  - PLEURAL EFFUSION [None]
